FAERS Safety Report 8506371 (Version 8)
Quarter: 2012Q4

REPORT INFORMATION
  Report Type: 
  Country: US (occurrence: US)
  Receive Date: 20120412
  Receipt Date: 20121109
  Transmission Date: 20130627
  Serious: Yes (Hospitalization, Other)
  Sender: FDA-Public Use
  Company Number: US-009507513-1204USA01365

PATIENT

DRUGS (4)
  1. FOSAMAX [Suspect]
     Indication: OSTEOPOROSIS
     Dosage: 70 mg, qw
     Route: 048
     Dates: start: 200307, end: 201003
  2. ACTONEL [Suspect]
     Indication: OSTEOPOROSIS
     Dosage: 35 mg, UNK
     Dates: start: 2002, end: 2003
  3. PREMPRO [Concomitant]
     Dates: start: 1997
  4. HYDROCHLOROTHIAZIDE (+) TRIAMTERENE [Concomitant]
     Indication: HYPERTENSION

REACTIONS (52)
  - Intramedullary rod insertion [Unknown]
  - Medical device implantation [Unknown]
  - Face lift [Unknown]
  - Ear operation [Unknown]
  - Carpal tunnel decompression [Unknown]
  - Uterine dilation and curettage [Unknown]
  - Femur fracture [Recovered/Resolved]
  - Femur fracture [Unknown]
  - Radiculopathy [Unknown]
  - Peptic ulcer [Unknown]
  - Muscle disorder [Unknown]
  - Arthropathy [Unknown]
  - Hiatus hernia [Unknown]
  - Soft tissue mass [Unknown]
  - Excoriation [Recovered/Resolved]
  - Osteitis [Unknown]
  - Fall [Unknown]
  - Scoliosis [Unknown]
  - Balance disorder [Unknown]
  - Heart valve incompetence [Unknown]
  - Aortic valve sclerosis [Unknown]
  - Pain [Unknown]
  - Pollakiuria [Unknown]
  - Vulvovaginal dryness [Unknown]
  - Cystocele [Unknown]
  - Varicose vein [Unknown]
  - Osteoarthritis [Unknown]
  - Anxiety [Unknown]
  - Vitamin D deficiency [Unknown]
  - Stress [Unknown]
  - Depression [Unknown]
  - Proctalgia [Unknown]
  - Transfusion [Unknown]
  - Breast mass [Unknown]
  - Extraocular muscle disorder [Unknown]
  - Carpal tunnel syndrome [Unknown]
  - Varicella [Unknown]
  - Breast disorder [Unknown]
  - Uterine haemorrhage [Unknown]
  - Biopsy skin [Unknown]
  - Influenza [Unknown]
  - Measles [Unknown]
  - Mumps [Unknown]
  - Pneumonia [Unknown]
  - Syncope [Unknown]
  - Memory impairment [Unknown]
  - Pertussis [Unknown]
  - Muscle spasms [Unknown]
  - Headache [Not Recovered/Not Resolved]
  - Back pain [Unknown]
  - Pain in extremity [Unknown]
  - Gastrooesophageal reflux disease [Unknown]
